FAERS Safety Report 8524269-7 (Version None)
Quarter: 2012Q3

REPORT INFORMATION
  Report Type: 
  Country: None (occurrence: None)
  Receive Date: 20120716
  Receipt Date: 20120716
  Transmission Date: 20120928
  Serious: Yes (Life-Threatening, Hospitalization)
  Sender: FDA-Public Use
  Company Number: None

PATIENT
  Age: 74 Year
  Sex: Male
  Weight: 75.2971 kg

DRUGS (5)
  1. LIPITOR [Concomitant]
  2. XARELTO [Suspect]
     Indication: ATRIAL FIBRILLATION
     Dosage: 20 MG BEDTIME PO
     Route: 048
     Dates: start: 20120425, end: 20120428
  3. MULTAQ [Concomitant]
  4. TOPROL-XL [Concomitant]
  5. ASPIRIN [Concomitant]

REACTIONS (3)
  - RECTAL HAEMORRHAGE [None]
  - HAEMOGLOBIN DECREASED [None]
  - HAEMATOCRIT DECREASED [None]
